FAERS Safety Report 18580484 (Version 2)
Quarter: 2020Q4

REPORT INFORMATION
  Report Type: Spontaneous
  Country: JP (occurrence: JP)
  Receive Date: 20201204
  Receipt Date: 20201223
  Transmission Date: 20210114
  Serious: Yes (Hospitalization)
  Sender: FDA-Public Use
  Company Number: JP-OTSUKA-2020_029933

PATIENT
  Age: 5 Decade
  Sex: Female

DRUGS (6)
  1. REXULTI [Suspect]
     Active Substance: BREXPIPRAZOLE
     Dosage: 2 MG/DAY
     Route: 048
     Dates: start: 20200316
  2. RISPERIDONE. [Concomitant]
     Active Substance: RISPERIDONE
     Indication: SCHIZOPHRENIA
     Dosage: 2 MG, QD
     Route: 065
  3. REXULTI [Suspect]
     Active Substance: BREXPIPRAZOLE
     Dosage: 1.5MG/DAY
     Route: 048
     Dates: start: 20200204, end: 20200210
  4. REXULTI [Suspect]
     Active Substance: BREXPIPRAZOLE
     Dosage: 1MG/DAY
     Route: 048
     Dates: start: 20200309, end: 20200315
  5. REXULTI [Suspect]
     Active Substance: BREXPIPRAZOLE
     Indication: SCHIZOPHRENIA
     Dosage: 2 MG/DAY
     Route: 048
     Dates: start: 20200211, end: 20200227
  6. REXULTI [Suspect]
     Active Substance: BREXPIPRAZOLE
     Dosage: 1 MG/DAY
     Route: 048
     Dates: start: 20200128, end: 20200203

REACTIONS (2)
  - Delusion [Recovering/Resolving]
  - Refusal of treatment by patient [Unknown]
